FAERS Safety Report 8450397-0 (Version None)
Quarter: 2012Q2

REPORT INFORMATION
  Report Type: 
  Country: None (occurrence: None)
  Receive Date: 20120620
  Receipt Date: 20120613
  Transmission Date: 20120825
  Serious: Yes (Life-Threatening)
  Sender: FDA-Public Use
  Company Number: GB-SANOFI-AVENTIS-2012SA036436

PATIENT
  Age: 45 Year
  Sex: Male
  Weight: 85.5 kg

DRUGS (5)
  1. BEVACIZUMAB [Concomitant]
  2. OXALIPLATIN [Suspect]
     Route: 042
     Dates: start: 20111201, end: 20120510
  3. CHLORPHENIRAMINE MALEATE [Concomitant]
     Route: 042
     Dates: start: 20120329
  4. CAPECITABINE [Concomitant]
  5. HYDROCORTISONE [Concomitant]
     Dates: start: 20120329

REACTIONS (2)
  - BLOOD PRESSURE IMMEASURABLE [None]
  - LOSS OF CONSCIOUSNESS [None]
